FAERS Safety Report 7502296-6 (Version None)
Quarter: 2011Q2

REPORT INFORMATION
  Report Type: 
  Country: None (occurrence: None)
  Receive Date: 20110523
  Receipt Date: 20110523
  Transmission Date: 20111010
  Serious: Yes (Hospitalization)
  Sender: FDA-Public Use
  Company Number: None

PATIENT
  Age: 67 Year
  Sex: Female
  Weight: 40.8237 kg

DRUGS (2)
  1. FENTANYL [Suspect]
     Indication: PAIN
     Dosage: 1 PATCH APPLIED TO SKIN EVERY 48 HOURS TRANSDERMAL
     Route: 062
  2. FENTANYL [Suspect]
     Indication: PAIN
     Dosage: 1 PATCH APPLIED TO SKIN EVERY 48 HOURS TRANSDERMAL
     Route: 062

REACTIONS (7)
  - UNRESPONSIVE TO STIMULI [None]
  - PRODUCT SUBSTITUTION ISSUE [None]
  - MUSCLE SPASMS [None]
  - DYSPNOEA [None]
  - DEVICE INEFFECTIVE [None]
  - PAIN [None]
  - INCORRECT DOSE ADMINISTERED BY DEVICE [None]
